FAERS Safety Report 21769629 (Version 3)
Quarter: 2023Q1

REPORT INFORMATION
  Report Type: Spontaneous
  Country: ES (occurrence: ES)
  Receive Date: 20221223
  Receipt Date: 20230221
  Transmission Date: 20230418
  Serious: Yes (Death, Hospitalization, Other)
  Sender: FDA-Public Use
  Company Number: ES-ASTELLAS-2022US044560

PATIENT
  Age: 70 Year
  Sex: Female

DRUGS (5)
  1. TACROLIMUS [Suspect]
     Active Substance: TACROLIMUS
     Indication: Immunosuppression
     Dosage: 10.5 MG,QD (INITIALLY)
     Route: 065
     Dates: start: 20191116
  2. TACROLIMUS [Suspect]
     Active Substance: TACROLIMUS
     Indication: Renal transplant
     Dosage: UNK, UNKNOWN FREQ. (DOSE MODIFIED)
     Route: 065
  3. TACROLIMUS [Suspect]
     Active Substance: TACROLIMUS
     Dosage: UNK (DOSE MODIFIED)
     Route: 065
     Dates: end: 20200812
  4. BASILIXIMAB [Concomitant]
     Active Substance: BASILIXIMAB
     Indication: Immunosuppression
     Dosage: UNK (UNK UNK, UNKNOWN FREQ.)
     Route: 065
  5. MYCOPHENOLIC ACID [Concomitant]
     Active Substance: MYCOPHENOLIC ACID
     Indication: Immunosuppression
     Dosage: UNK (UNK UNK, UNKNOWN FREQ.)
     Route: 065

REACTIONS (15)
  - Klebsiella bacteraemia [Fatal]
  - Acute kidney injury [Fatal]
  - Urinary tract infection fungal [Fatal]
  - Enterobacter bacteraemia [Fatal]
  - Renal tubular necrosis [Fatal]
  - Gastrointestinal haemorrhage [Unknown]
  - Gastrointestinal ulcer haemorrhage [Recovered/Resolved]
  - Helicobacter infection [Recovered/Resolved]
  - Transplant rejection [Recovering/Resolving]
  - Kidney transplant rejection [Recovering/Resolving]
  - Renal impairment [Not Recovered/Not Resolved]
  - Oliguria [Recovering/Resolving]
  - Urinary tract infection [Unknown]
  - Pyrexia [Recovering/Resolving]
  - Renal mass [Unknown]

NARRATIVE: CASE EVENT DATE: 20200108
